FAERS Safety Report 15419930 (Version 1)
Quarter: 2018Q3

REPORT INFORMATION
  Report Type: Spontaneous
  Country: US (occurrence: US)
  Receive Date: 20180924
  Receipt Date: 20180924
  Transmission Date: 20181010
  Serious: No
  Sender: FDA-Public Use
  Company Number: US-ADAMAS PHARMA, LLC-2018ADA00924

PATIENT
  Age: 89 Year
  Sex: Female
  Weight: 49.89 kg

DRUGS (10)
  1. GOCOVRI [Suspect]
     Active Substance: AMANTADINE
     Indication: DYSKINESIA
     Dosage: 137 MG, 1X/DAY AT 8PM
     Route: 048
     Dates: start: 20180407, end: 20180413
  2. PRILOSEC [Concomitant]
     Active Substance: OMEPRAZOLE MAGNESIUM
  3. VITAMIN D3 [Concomitant]
     Active Substance: CHOLECALCIFEROL
  4. GOCOVRI [Suspect]
     Active Substance: AMANTADINE
     Dosage: 137 MG, 1X/DAY AT 8PM
     Route: 048
     Dates: start: 20180415, end: 20180415
  5. AZILECT [Concomitant]
     Active Substance: RASAGILINE MESYLATE
  6. CARBIDOPA/LEVODOPA [Concomitant]
     Active Substance: CARBIDOPA\LEVODOPA
  7. GABAPENTIN. [Concomitant]
     Active Substance: GABAPENTIN
  8. GOCOVRI [Suspect]
     Active Substance: AMANTADINE
     Dosage: 274 MG, 1X/DAY AT 8PM
     Route: 048
     Dates: start: 20180414, end: 20180414
  9. ROPINIROLE. [Concomitant]
     Active Substance: ROPINIROLE
  10. SIMVASTATIN. [Concomitant]
     Active Substance: SIMVASTATIN

REACTIONS (4)
  - Cataract [Not Recovered/Not Resolved]
  - Vitreous floaters [Not Recovered/Not Resolved]
  - Chromatopsia [Not Recovered/Not Resolved]
  - Hallucination, visual [Not Recovered/Not Resolved]

NARRATIVE: CASE EVENT DATE: 2018
